FAERS Safety Report 20430743 (Version 1)
Quarter: 2022Q1

REPORT INFORMATION
  Report Type: Report from Study
  Country: FR (occurrence: FR)
  Receive Date: 20220204
  Receipt Date: 20220204
  Transmission Date: 20220423
  Serious: Yes (Hospitalization)
  Sender: FDA-Public Use
  Company Number: FR-SERVIER-S21002911

PATIENT

DRUGS (5)
  1. PEGASPARGASE [Suspect]
     Active Substance: PEGASPARGASE
     Indication: Acute lymphocytic leukaemia
     Dosage: UNK
     Route: 042
  2. MERCAPTOPURINE [Suspect]
     Active Substance: MERCAPTOPURINE
     Indication: Acute lymphocytic leukaemia
     Dosage: 50 MG
     Route: 048
     Dates: start: 20201127
  3. VINCRISTINE SULFATE [Suspect]
     Active Substance: VINCRISTINE SULFATE
     Indication: Acute lymphocytic leukaemia
     Dosage: 1.8 MG, ON D1 AND D8
     Route: 042
     Dates: start: 20201127
  4. METHOTREXATE [Suspect]
     Active Substance: METHOTREXATE
     Indication: Acute lymphocytic leukaemia
     Dosage: 15 MG
     Route: 037
     Dates: start: 20201211
  5. METHOTREXATE [Suspect]
     Active Substance: METHOTREXATE
     Dosage: 27.5 MG
     Route: 048
     Dates: start: 20201127

REACTIONS (1)
  - Suicide attempt [Recovered/Resolved with Sequelae]

NARRATIVE: CASE EVENT DATE: 20210222
